FAERS Safety Report 9097102 (Version 1)
Quarter: 2013Q1

REPORT INFORMATION
  Report Type: Spontaneous
  Country: GR (occurrence: None)
  Receive Date: 20130123
  Receipt Date: 20130123
  Transmission Date: 20140127
  Serious: Yes (Hospitalization, Other)
  Sender: FDA-Public Use
  Company Number: AUR-APL-2013-00689

PATIENT
  Age: 67 Year
  Sex: Female
  Weight: 70 kg

DRUGS (5)
  1. SIMVASTATIN (SIMVASTATIN) [Suspect]
     Indication: PRODUCT USED FOR UNKNOWN INDICATION
     Dosage: 40 MG, 1 D
  2. GEMFIBROZIL [Suspect]
     Indication: PRODUCT USED FOR UNKNOWN INDICATION
     Dosage: 1200 MG, 1 D)
  3. SITAGLIPTIN [Suspect]
     Indication: TYPE 2 DIABETES MELLITUS
     Dosage: 100 MG, 1 D
  4. QUINAPRIL (QUINAPRIL) [Concomitant]
  5. ASPIRIN (ACETYLSALICYLIC ACID) [Concomitant]

REACTIONS (9)
  - Rhabdomyolysis [None]
  - Drug interaction [None]
  - Diabetic nephropathy [None]
  - Glomerular filtration rate decreased [None]
  - Type V hyperlipidaemia [None]
  - Aspartate aminotransferase increased [None]
  - Blood lactate dehydrogenase increased [None]
  - Blood creatine phosphokinase increased [None]
  - Blood potassium increased [None]
